FAERS Safety Report 7366325-5 (Version None)
Quarter: 2011Q1

REPORT INFORMATION
  Report Type: 
  Country: None (occurrence: None)
  Receive Date: 20110322
  Receipt Date: 20110308
  Transmission Date: 20110831
  Serious: Yes (Hospitalization)
  Sender: FDA-Public Use
  Company Number: US-JNJFOC-20060705484

PATIENT
  Sex: Female
  Weight: 96 kg

DRUGS (4)
  1. INFLIXIMAB [Suspect]
     Indication: COLITIS
     Route: 042
  2. INFLIXIMAB [Suspect]
     Indication: COLITIS ULCERATIVE
     Route: 042
  3. INFLIXIMAB [Suspect]
     Route: 042
  4. INFLIXIMAB [Suspect]
     Route: 042

REACTIONS (2)
  - POUCHITIS [None]
  - GASTROINTESTINAL INFLAMMATION [None]
